FAERS Safety Report 5919393-9 (Version None)
Quarter: 2008Q4

REPORT INFORMATION
  Report Type: 
  Country: None (occurrence: None)
  Receive Date: 20081015
  Receipt Date: 20081009
  Transmission Date: 20090506
  Serious: Yes (Other)
  Sender: FDA-Public Use
  Company Number: B0540885A

PATIENT
  Age: 72 Year
  Sex: Male

DRUGS (4)
  1. LAMIVUDINE [Suspect]
     Route: 048
     Dates: start: 20060601
  2. PREDNISOLONE [Concomitant]
     Indication: CHEMOTHERAPY
     Route: 065
  3. VINCRISTINE SULFATE [Concomitant]
     Indication: CHEMOTHERAPY
     Route: 042
  4. RITUXIMAB [Concomitant]
     Indication: CHEMOTHERAPY
     Route: 042

REACTIONS (1)
  - WHITE BLOOD CELL COUNT DECREASED [None]
